FAERS Safety Report 9519762 (Version 1)
Quarter: 2013Q3

REPORT INFORMATION
  Report Type: Spontaneous
  Country: US (occurrence: None)
  Receive Date: 20130911
  Receipt Date: 20130911
  Transmission Date: 20140515
  Serious: Yes (Other)
  Sender: FDA-Public Use
  Company Number: None

PATIENT
  Age: 72 Year
  Sex: Female
  Weight: 62.7 kg

DRUGS (3)
  1. BENICAR HCT [Suspect]
     Indication: HYPERTENSION
     Dosage: 40 MG DAILY ORAL
     Route: 048
     Dates: start: 201011, end: 201307
  2. SIMVASTATIN [Concomitant]
  3. AZOPT 1% [Concomitant]

REACTIONS (8)
  - Nausea [None]
  - Vomiting [None]
  - Abdominal pain [None]
  - Diarrhoea [None]
  - Weight decreased [None]
  - Iron deficiency anaemia [None]
  - Red blood cell sedimentation rate increased [None]
  - Colitis microscopic [None]
